FAERS Safety Report 12469681 (Version 1)
Quarter: 2016Q2

REPORT INFORMATION
  Report Type: Report from Study
  Country: DE (occurrence: DE)
  Receive Date: 20160615
  Receipt Date: 20160615
  Transmission Date: 20160815
  Serious: Yes (Hospitalization, Other)
  Sender: FDA-Public Use
  Company Number: DE-BRISTOL-MYERS SQUIBB COMPANY-BMS-2016-042702

PATIENT
  Age: 81 Year
  Sex: Female
  Weight: 70 kg

DRUGS (9)
  1. NOVALGIN [Concomitant]
     Active Substance: METAMIZOLE SODIUM
     Indication: PRODUCT USED FOR UNKNOWN INDICATION
     Dosage: 500 MG, QID
     Route: 065
  2. TOREM                              /01036501/ [Concomitant]
     Active Substance: TORSEMIDE
     Indication: PRODUCT USED FOR UNKNOWN INDICATION
     Dosage: 20 MG, QD
     Route: 065
  3. ORTOTON                            /00047901/ [Concomitant]
     Indication: PRODUCT USED FOR UNKNOWN INDICATION
     Dosage: 750 MG, TID
     Route: 065
  4. APIXABAN [Suspect]
     Active Substance: APIXABAN
     Indication: CEREBROVASCULAR ACCIDENT PROPHYLAXIS
     Dosage: 5 MG, BID
     Route: 048
  5. DORZOLAMIDE [Concomitant]
     Active Substance: DORZOLAMIDE
     Indication: PRODUCT USED FOR UNKNOWN INDICATION
     Dosage: UNK, QD
     Route: 065
  6. PANTOZOL [Concomitant]
     Active Substance: PANTOPRAZOLE SODIUM
     Indication: PRODUCT USED FOR UNKNOWN INDICATION
     Dosage: 40 MG, QD
     Route: 065
  7. ACC                                /00082801/ [Concomitant]
     Indication: PRODUCT USED FOR UNKNOWN INDICATION
     Dosage: 600 MG, QD
     Route: 065
  8. GANFORT [Concomitant]
     Active Substance: BIMATOPROST\TIMOLOL
     Indication: PRODUCT USED FOR UNKNOWN INDICATION
     Dosage: UNK, BID
     Route: 065
  9. ADENURIC [Concomitant]
     Active Substance: FEBUXOSTAT
     Indication: PRODUCT USED FOR UNKNOWN INDICATION
     Dosage: 80 MG, QD
     Route: 065

REACTIONS (11)
  - Cerebrovascular accident [Recovered/Resolved]
  - Melaena [Unknown]
  - Mallory-Weiss syndrome [Unknown]
  - Haemorrhagic anaemia [Unknown]
  - Cerebrospinal fluid drainage [Unknown]
  - Thrombectomy [Unknown]
  - Fall [Unknown]
  - Packed red blood cell transfusion [Unknown]
  - Pneumonia aspiration [Recovered/Resolved]
  - Normal pressure hydrocephalus [Not Recovered/Not Resolved]
  - Stridor [Unknown]

NARRATIVE: CASE EVENT DATE: 20160214
